FAERS Safety Report 11498219 (Version 2)
Quarter: 2015Q3

REPORT INFORMATION
  Report Type: Spontaneous
  Country: US (occurrence: US)
  Receive Date: 20150911
  Receipt Date: 20150917
  Transmission Date: 20151125
  Serious: Yes (Hospitalization)
  Sender: FDA-Public Use
  Company Number: US-PFIZER INC-2015296949

PATIENT
  Age: 71 Year
  Sex: Female
  Weight: 55 kg

DRUGS (8)
  1. LYRICA [Suspect]
     Active Substance: PREGABALIN
     Dosage: 100 MG, UNK
     Dates: start: 201409, end: 2014
  2. PANTOPRAZOLE FOD [Concomitant]
     Indication: ABDOMINAL DISCOMFORT
     Dosage: 40 MG, UNK
     Route: 048
  3. LYRICA [Suspect]
     Active Substance: PREGABALIN
     Indication: POST HERPETIC NEURALGIA
     Dosage: 75 MG, 3X/DAY
     Dates: start: 2014, end: 2014
  4. FLUNISOLIDE. [Concomitant]
     Active Substance: FLUNISOLIDE
     Dosage: 25 %, 1X/DAY (25 PERCENT 1 TIME A DAY)
  5. CARVEDILOL. [Concomitant]
     Active Substance: CARVEDILOL
     Indication: CARDIAC DISORDER
     Dosage: 3.125 MG, 2X/DAY
     Route: 048
  6. POTASSIUM CHLORIDE. [Concomitant]
     Active Substance: POTASSIUM CHLORIDE
     Dosage: 20 MEQ, UNK
     Route: 048
  7. LYRICA [Suspect]
     Active Substance: PREGABALIN
     Dosage: 75 UNK, UNK
     Dates: start: 2014, end: 201508
  8. FUROSEMIDE. [Concomitant]
     Active Substance: FUROSEMIDE
     Indication: FLUID RETENTION
     Dosage: 40 MG, UNK

REACTIONS (5)
  - Pre-existing condition improved [Unknown]
  - Large intestinal obstruction [Unknown]
  - Drug effect incomplete [Unknown]
  - Therapeutic response unexpected [Unknown]
  - Sleep disorder [Unknown]

NARRATIVE: CASE EVENT DATE: 201409
